FAERS Safety Report 25457452 (Version 2)
Quarter: 2025Q3

REPORT INFORMATION
  Report Type: Spontaneous
  Country: US (occurrence: US)
  Receive Date: 20250619
  Receipt Date: 20250715
  Transmission Date: 20251020
  Serious: No
  Sender: CALLIDITAS THERAPEUTICS AB
  Company Number: US-Calliditas-2025CAL01705

PATIENT
  Age: 51 Year
  Sex: Male

DRUGS (7)
  1. TARPEYO [Suspect]
     Active Substance: BUDESONIDE
     Indication: IgA nephropathy
     Route: 048
     Dates: start: 20250214
  2. CALCITRIOL [Concomitant]
     Active Substance: CALCITRIOL
  3. CHOLECALCIFEROL [Concomitant]
     Active Substance: CHOLECALCIFEROL
  4. CRESTOR [Concomitant]
     Active Substance: ROSUVASTATIN CALCIUM
  5. FILSPARI [Concomitant]
     Active Substance: SPARSENTAN
  6. FISH OIL [Concomitant]
     Active Substance: FISH OIL
  7. LEXAPRO [Concomitant]
     Active Substance: ESCITALOPRAM OXALATE

REACTIONS (1)
  - Blood glucose increased [Recovered/Resolved]

NARRATIVE: CASE EVENT DATE: 20250604
